FAERS Safety Report 21368555 (Version 1)
Quarter: 2022Q3

REPORT INFORMATION
  Report Type: Report from Study
  Country: US (occurrence: US)
  Receive Date: 20220923
  Receipt Date: 20220923
  Transmission Date: 20221027
  Serious: Yes (Hospitalization, Other)
  Sender: FDA-Public Use
  Company Number: US-BRISTOL-MYERS SQUIBB COMPANY-2022-107396

PATIENT
  Age: 61 Year
  Sex: Male
  Weight: 98.38 kg

DRUGS (3)
  1. REVLIMID [Suspect]
     Active Substance: LENALIDOMIDE
     Indication: Plasma cell myeloma
     Route: 048
     Dates: start: 20220602
  2. DEXAMETHASONE [Suspect]
     Active Substance: DEXAMETHASONE
     Indication: Product used for unknown indication
     Route: 065
  3. RETACRIT [Concomitant]
     Active Substance: EPOETIN ALFA-EPBX
     Indication: Product used for unknown indication
     Route: 065

REACTIONS (7)
  - Chest discomfort [Unknown]
  - Insomnia [Unknown]
  - Blood glucose increased [Unknown]
  - Haemoglobin increased [Unknown]
  - Neuropathy peripheral [Unknown]
  - Inappropriate schedule of product administration [Unknown]
  - Oedema [Unknown]
